FAERS Safety Report 9996384 (Version 1)
Quarter: 2014Q1

REPORT INFORMATION
  Report Type: Spontaneous
  Country: JP (occurrence: JP)
  Receive Date: 20140311
  Receipt Date: 20140311
  Transmission Date: 20141002
  Serious: Yes (Hospitalization)
  Sender: FDA-Public Use
  Company Number: JP-GLAXOSMITHKLINE-B0966009A

PATIENT
  Age: 79 Year
  Sex: Male

DRUGS (5)
  1. RELENZA [Suspect]
     Indication: INFLUENZA
     Dosage: 10MG TWICE PER DAY
     Route: 055
     Dates: start: 20140123, end: 20140125
  2. AMARYL [Concomitant]
     Dosage: 1MG PER DAY
     Route: 048
     Dates: end: 20140126
  3. MICAMLO [Concomitant]
     Dosage: 1IUAX PER DAY
     Route: 048
     Dates: end: 20140126
  4. ALLOPURINOL [Concomitant]
     Dosage: 100MG TWICE PER DAY
     Route: 048
     Dates: end: 20140126
  5. TRICHLORMETHIAZIDE [Concomitant]
     Dosage: 1MG PER DAY
     Route: 048
     Dates: end: 20140126

REACTIONS (4)
  - Purpura [Recovering/Resolving]
  - Erythema [Recovering/Resolving]
  - Hyperthermia [Recovering/Resolving]
  - Rash [Recovering/Resolving]
